FAERS Safety Report 8816906 (Version 1)
Quarter: 2012Q4

REPORT INFORMATION
  Report Type: Spontaneous
  Country: US (occurrence: None)
  Receive Date: 20121002
  Receipt Date: 20121002
  Transmission Date: 20130627
  Serious: Yes (Other)
  Sender: FDA-Public Use
  Company Number: None

PATIENT
  Sex: Female
  Weight: 92.99 kg

DRUGS (1)
  1. COUMADIN [Suspect]
     Indication: PULMONARY EMBOLISM
     Dosage: 6 to 8 mg 1 x day
     Dates: start: 20120205, end: 20120904

REACTIONS (1)
  - Alopecia [None]
